FAERS Safety Report 9945005 (Version 1)
Quarter: 2014Q1

REPORT INFORMATION
  Report Type: Spontaneous
  Country: US (occurrence: US)
  Receive Date: 20140303
  Receipt Date: 20140303
  Transmission Date: 20141002
  Serious: No
  Sender: FDA-Public Use
  Company Number: US-ABBVIE-13P-163-1056168-00

PATIENT
  Age: 56 Year
  Sex: Female
  Weight: 66.74 kg

DRUGS (9)
  1. HUMIRA [Suspect]
     Indication: PSORIASIS
     Dates: start: 2011
  2. HUMIRA [Suspect]
     Indication: PSORIATIC ARTHROPATHY
  3. DILAUDID [Concomitant]
     Indication: PAIN
  4. XANAX [Concomitant]
     Indication: FEELING OF RELAXATION
  5. EFFEXOR [Concomitant]
     Indication: NEURALGIA
  6. BACLOFEN [Concomitant]
     Indication: HYPOTONIA
  7. PRILOSEC [Concomitant]
     Indication: GASTROOESOPHAGEAL REFLUX DISEASE
  8. POTASSIUM [Concomitant]
     Indication: BLOOD SODIUM NORMAL
  9. PHENOBARBITAL [Concomitant]
     Indication: CONVULSION

REACTIONS (1)
  - Psoriasis [Not Recovered/Not Resolved]
